FAERS Safety Report 4438232-9 (Version None)
Quarter: 2004Q3

REPORT INFORMATION
  Report Type: 
  Country: None (occurrence: None)
  Receive Date: 20040831
  Receipt Date: 20040624
  Transmission Date: 20050211
  Serious: Yes (Hospitalization)
  Sender: FDA-Public Use
  Company Number: US-GLAXOSMITHKLINE-A0515883A

PATIENT
  Age: 30 Year
  Sex: Female

DRUGS (2)
  1. WELLBUTRIN [Suspect]
     Dosage: 300MG PER DAY
     Route: 048
     Dates: start: 20040517, end: 20040604
  2. BIRTH CONTROL PILLS [Concomitant]

REACTIONS (1)
  - ERYTHEMA MULTIFORME [None]
